FAERS Safety Report 10013981 (Version 1)
Quarter: 2014Q1

REPORT INFORMATION
  Report Type: Spontaneous
  Country: AT (occurrence: AT)
  Receive Date: 20140316
  Receipt Date: 20140316
  Transmission Date: 20141002
  Serious: Yes (Hospitalization)
  Sender: FDA-Public Use
  Company Number: AT-JNJFOC-20140307784

PATIENT
  Sex: Female

DRUGS (4)
  1. XARELTO [Suspect]
     Indication: CEREBROVASCULAR ACCIDENT PROPHYLAXIS
     Route: 048
     Dates: start: 201305
  2. XARELTO [Suspect]
     Indication: CEREBROVASCULAR ACCIDENT PROPHYLAXIS
     Route: 048
  3. XARELTO [Suspect]
     Indication: ATRIAL FIBRILLATION
     Route: 048
     Dates: start: 201305
  4. XARELTO [Suspect]
     Indication: ATRIAL FIBRILLATION
     Route: 048

REACTIONS (1)
  - Cerebrovascular accident [Unknown]
